FAERS Safety Report 14711127 (Version 2)
Quarter: 2018Q2

REPORT INFORMATION
  Report Type: Spontaneous
  Country: US (occurrence: US)
  Receive Date: 20180403
  Receipt Date: 20180629
  Transmission Date: 20180711
  Serious: Yes (Other)
  Sender: FDA-Public Use
  Company Number: US-PFIZER INC-2018134293

PATIENT
  Age: 60 Year
  Sex: Female

DRUGS (2)
  1. IBRANCE [Suspect]
     Active Substance: PALBOCICLIB
     Dosage: 100 MG, CYCLIC, DAILY (14 DAYS) (OFF 14 DAYS)
     Route: 048
     Dates: start: 20170224
  2. IBRANCE [Suspect]
     Active Substance: PALBOCICLIB
     Indication: BREAST CANCER FEMALE
     Dosage: 100 MG, CYCLIC (EVERY 2 WEEKS ON, OFF 2 WEEKS)
     Route: 048
     Dates: start: 201611

REACTIONS (2)
  - Gastrooesophageal reflux disease [Unknown]
  - Colitis [Unknown]

NARRATIVE: CASE EVENT DATE: 20180225
